FAERS Safety Report 4642126-3 (Version None)
Quarter: 2005Q2

REPORT INFORMATION
  Report Type: 
  Country: None (occurrence: None)
  Receive Date: 20050422
  Receipt Date: 20050415
  Transmission Date: 20051028
  Serious: Yes (Death, Other)
  Sender: FDA-Public Use
  Company Number: PHBS2005IT05465

PATIENT
  Age: 53 Year

DRUGS (4)
  1. CYCLOSPORINE [Suspect]
     Indication: STEM CELL TRANSPLANT
     Route: 065
  2. MYCOPHENOLATE MOFETIL [Concomitant]
     Indication: STEM CELL TRANSPLANT
  3. FLUDARABINE PHOSPHATE [Concomitant]
     Indication: STEM CELL TRANSPLANT
     Dosage: 30 MG/M2
  4. IRRADIATION [Concomitant]
     Indication: STEM CELL TRANSPLANT

REACTIONS (5)
  - BLOOD BILIRUBIN INCREASED [None]
  - BONE MARROW TRANSPLANT REJECTION [None]
  - DIARRHOEA [None]
  - GRAFT VERSUS HOST DISEASE [None]
  - PNEUMONIA STAPHYLOCOCCAL [None]
